FAERS Safety Report 7694300-X (Version None)
Quarter: 2011Q3

REPORT INFORMATION
  Report Type: 
  Country: None (occurrence: None)
  Receive Date: 20110819
  Receipt Date: 20110811
  Transmission Date: 20111222
  Serious: Yes (Death)
  Sender: FDA-Public Use
  Company Number: US-CELGENEUS-163-21880-11081571

PATIENT
  Age: 77 Year
  Sex: Male

DRUGS (8)
  1. PRAVASTATIN [Concomitant]
     Route: 065
  2. ASPIRIN [Concomitant]
     Route: 065
  3. PANTOPRAZOLE [Concomitant]
     Route: 065
  4. REVLIMID [Suspect]
     Dosage: 10 MILLIGRAM
     Route: 048
     Dates: start: 20110501, end: 20110801
  5. REVLIMID [Suspect]
     Indication: MULTIPLE MYELOMA
     Dosage: 10 MILLIGRAM
     Route: 048
     Dates: start: 20081101, end: 20090301
  6. METOPROLOL SUCCINATE [Concomitant]
     Route: 065
  7. CLOPIDOGREL [Concomitant]
     Route: 065
  8. LOSARTAN [Concomitant]
     Route: 065

REACTIONS (1)
  - VENTRICULAR TACHYCARDIA [None]
